FAERS Safety Report 20115050 (Version 3)
Quarter: 2024Q4

REPORT INFORMATION
  Report Type: Spontaneous
  Country: PT (occurrence: PT)
  Receive Date: 20211125
  Receipt Date: 20241217
  Transmission Date: 20250115
  Serious: Yes (Hospitalization, Other)
  Sender: SANOFI AVENTIS
  Company Number: PT-SA-2021SA390897

PATIENT
  Age: 70 Year
  Sex: Female

DRUGS (1)
  1. ENOXAPARIN SODIUM [Suspect]
     Active Substance: ENOXAPARIN SODIUM
     Indication: Prophylaxis
     Dosage: 40 MG, QD
     Dates: start: 20201231

REACTIONS (7)
  - Heparin-induced thrombocytopenia [Recovered/Resolved]
  - Abdominal pain [Recovered/Resolved]
  - Skin necrosis [Recovered/Resolved]
  - Injection site erythema [Recovered/Resolved]
  - Injection site necrosis [Recovered/Resolved]
  - Skin lesion [Recovered/Resolved]
  - Pain of skin [Recovered/Resolved]

NARRATIVE: CASE EVENT DATE: 20210111
